FAERS Safety Report 7338059-4 (Version None)
Quarter: 2011Q1

REPORT INFORMATION
  Report Type: 
  Country: None (occurrence: None)
  Receive Date: 20110308
  Receipt Date: 20110222
  Transmission Date: 20110831
  Serious: Yes (Hospitalization)
  Sender: FDA-Public Use
  Company Number: PHHY2011NL01822

PATIENT
  Sex: Male

DRUGS (4)
  1. ZOMETA [Suspect]
     Indication: PROSTATE CANCER METASTATIC
     Dosage: 04/05 MG/ML
     Dates: start: 20100917
  2. ZOMETA [Suspect]
     Dosage: 04/05 MG/ML
     Dates: start: 20110125
  3. ZOMETA [Suspect]
     Dosage: 04/05 MG/ML
     Dates: start: 20101210
  4. ZOMETA [Suspect]
     Dosage: 04/05 MG/ML
     Dates: start: 20101111

REACTIONS (1)
  - POST PROCEDURAL COMPLICATION [None]
